FAERS Safety Report 14990891 (Version 1)
Quarter: 2018Q2

REPORT INFORMATION
  Report Type: Spontaneous
  Country: FR (occurrence: FR)
  Receive Date: 20180608
  Receipt Date: 20180608
  Transmission Date: 20180711
  Serious: Yes (Hospitalization)
  Sender: FDA-Public Use
  Company Number: FR-MYLANLABS-2018M1039552

PATIENT

DRUGS (1)
  1. BISOCE [Suspect]
     Active Substance: BISOPROLOL
     Indication: CHEST PAIN
     Dosage: 2.5 MG, QD
     Route: 048
     Dates: start: 20180503, end: 20180507

REACTIONS (1)
  - Mixed liver injury [Unknown]

NARRATIVE: CASE EVENT DATE: 20180507
